FAERS Safety Report 8870160 (Version 2)
Quarter: 2013Q1

REPORT INFORMATION
  Report Type: Spontaneous
  Country: US (occurrence: None)
  Receive Date: 20121024
  Receipt Date: 20130211
  Transmission Date: 20140127
  Serious: Yes (Other)
  Sender: FDA-Public Use
  Company Number: ACO_32493_2012

PATIENT
  Age: 54 Year
  Sex: Male

DRUGS (3)
  1. AMPYRA [Suspect]
     Indication: PRODUCT USED FOR UNKNOWN INDICATION
     Route: 048
     Dates: start: 201201, end: 2012
  2. COPAXONE [Concomitant]
  3. PROMETHAZINE [Suspect]

REACTIONS (8)
  - Rib fracture [None]
  - Chills [None]
  - Vomiting [None]
  - Dizziness [None]
  - Fall [None]
  - Nausea [None]
  - Anger [None]
  - Depressed mood [None]
